FAERS Safety Report 4813775-4 (Version None)
Quarter: 2005Q4

REPORT INFORMATION
  Report Type: 
  Country: None (occurrence: None)
  Receive Date: 20051028
  Receipt Date: 20050317
  Transmission Date: 20060501
  Serious: No
  Sender: FDA-Public Use
  Company Number: US-GLAXOSMITHKLINE-A0550270A

PATIENT
  Age: 53 Year
  Sex: Female
  Weight: 63.6 kg

DRUGS (8)
  1. ADVAIR DISKUS 100/50 [Suspect]
     Indication: ASTHMA
     Dosage: 1PUFF TWICE PER DAY
     Route: 055
  2. ALBUTEROL [Suspect]
     Dosage: 2PUFF AS REQUIRED
     Route: 055
  3. SYNTHROID [Concomitant]
  4. MULTI-VITAMIN [Concomitant]
  5. CALCIUM SUPPLEMENT [Concomitant]
  6. ZINC SUPPLEMENT [Concomitant]
  7. VITAMIN B COMPLEX CAP [Concomitant]
  8. VITAMIN E [Concomitant]
     Dosage: 800IU UNKNOWN

REACTIONS (2)
  - GLOSSODYNIA [None]
  - ORAL DISCOMFORT [None]
